FAERS Safety Report 7220787-2 (Version None)
Quarter: 2011Q1

REPORT INFORMATION
  Report Type: 
  Country: None (occurrence: None)
  Receive Date: 20110112
  Receipt Date: 20110110
  Transmission Date: 20110831
  Serious: Yes (Hospitalization, Other)
  Sender: FDA-Public Use
  Company Number: US-ASTRAZENECA-2007UW05923

PATIENT
  Age: 14166 Day
  Sex: Male
  Weight: 116.1 kg

DRUGS (64)
  1. SEROQUEL [Suspect]
     Indication: INSOMNIA
     Dosage: 1200 MG
     Route: 048
     Dates: start: 20020101, end: 20060101
  2. SEROQUEL [Suspect]
     Indication: ANXIETY
     Dosage: 1200 MG
     Route: 048
     Dates: start: 20020101, end: 20060101
  3. SEROQUEL [Suspect]
     Indication: DEPRESSION
     Dosage: 1200 MG
     Route: 048
     Dates: start: 20020101, end: 20060101
  4. SEROQUEL [Suspect]
     Route: 048
     Dates: start: 20020401, end: 20060801
  5. SEROQUEL [Suspect]
     Route: 048
     Dates: start: 20061114
  6. SEROQUEL [Suspect]
     Route: 048
     Dates: start: 20061114
  7. ZESTRIL [Concomitant]
     Indication: ESSENTIAL HYPERTENSION
     Route: 048
     Dates: start: 20020118
  8. LEXAPRO [Concomitant]
     Dates: start: 20030322
  9. HUMULIN 70/30 [Concomitant]
     Indication: DIABETIC HYPEROSMOLAR COMA
     Dosage: 10 UNITS BID, 25 UNITS BID, 50 UNITS BID, 14 UNITS SLIDING SCALE PER DAY
     Route: 058
     Dates: start: 20030322
  10. TRICOR [Concomitant]
     Indication: HYPERTRIGLYCERIDAEMIA
     Dosage: 160 MG, 200 MG QD
     Route: 048
     Dates: start: 20030522
  11. ZOLOFT [Concomitant]
     Dosage: 100 MG
     Dates: start: 20020401
  12. SEROQUEL [Suspect]
     Route: 048
     Dates: start: 20020101, end: 20060413
  13. SEROQUEL [Suspect]
     Route: 048
     Dates: start: 20020101, end: 20060413
  14. SEROQUEL [Suspect]
     Route: 048
     Dates: start: 20020411, end: 20060524
  15. SEROQUEL [Suspect]
     Route: 048
     Dates: start: 20020401, end: 20060801
  16. SEROQUEL [Suspect]
     Route: 048
     Dates: start: 20020401, end: 20060801
  17. SEROQUEL [Suspect]
     Route: 048
     Dates: start: 20061114
  18. PAXIL [Concomitant]
     Dates: start: 20011217
  19. SEROQUEL [Suspect]
     Indication: SLEEP DISORDER
     Dosage: 1200 MG
     Route: 048
     Dates: start: 20020101, end: 20060101
  20. SEROQUEL [Suspect]
     Indication: SCHIZOPHRENIA
     Dosage: 1200 MG
     Route: 048
     Dates: start: 20020101, end: 20060101
  21. PRILOSEC [Concomitant]
     Dates: start: 19980819
  22. ASPIRIN [Concomitant]
     Dosage: 81 MG ONCE A DAY, 325 MG ONCE A DAY
     Dates: start: 20010608
  23. BOTOX [Concomitant]
     Indication: HEADACHE
     Dates: start: 20020206
  24. LEVETIRACETAM [Concomitant]
     Dates: start: 20020226
  25. VALIUM [Concomitant]
     Indication: ANXIETY
     Dosage: 20 MG TID, 60 MG QID
     Dates: start: 20020829
  26. RHINOCORT [Concomitant]
     Dates: start: 20020401
  27. SEROQUEL [Suspect]
     Route: 048
     Dates: start: 20020411, end: 20060524
  28. SEROQUEL [Suspect]
     Route: 048
     Dates: start: 20061114
  29. SEROQUEL [Suspect]
     Route: 048
     Dates: start: 20061114
  30. LEVBID EXTENDED RELEASE [Concomitant]
     Dosage: 1 BID
     Dates: start: 20011217
  31. LASIX [Concomitant]
     Indication: ESSENTIAL HYPERTENSION
     Dosage: 20 MG QD, 40 MG QD, 40 MG BID
     Route: 048
     Dates: start: 20020430
  32. PHENERGAN [Concomitant]
     Indication: GASTROOESOPHAGEAL REFLUX DISEASE
     Route: 048
     Dates: start: 20030322
  33. SEROQUEL [Suspect]
     Route: 048
     Dates: start: 20020101, end: 20060413
  34. SEROQUEL [Suspect]
     Route: 048
     Dates: start: 20020101, end: 20060413
  35. SEROQUEL [Suspect]
     Route: 048
     Dates: start: 20020101, end: 20060413
  36. SEROQUEL [Suspect]
     Route: 048
     Dates: start: 20020411, end: 20060524
  37. SEROQUEL [Suspect]
     Route: 048
     Dates: start: 20020401, end: 20060801
  38. ZYRTEC [Concomitant]
     Indication: RHINITIS ALLERGIC
     Route: 048
     Dates: start: 20020416
  39. REGLAN [Concomitant]
     Indication: GASTROOESOPHAGEAL REFLUX DISEASE
     Dosage: 10 MG BID, 10 MG TID
     Route: 048
     Dates: start: 20020411
  40. INDERAL [Concomitant]
     Indication: TREMOR
     Dosage: 40 MG BID, 40 MG TID, 80 MG TID
     Dates: start: 19951128
  41. PHENERGAN [Concomitant]
     Indication: NAUSEA
     Route: 048
     Dates: start: 20030322
  42. NEXIUM [Concomitant]
     Indication: GASTROOESOPHAGEAL REFLUX DISEASE
     Dosage: 40 MG QD, 40 MG BID
     Route: 048
     Dates: start: 20030322
  43. SEROQUEL [Suspect]
     Route: 048
     Dates: start: 20020401, end: 20060801
  44. ZYPREXA [Suspect]
     Dates: end: 20020801
  45. VICODIN [Concomitant]
     Indication: PAIN
     Dosage: 50 ONE Q4H PRN, 75 MG ONE Q4H PRN
     Dates: start: 20020416
  46. ATIVAN [Concomitant]
     Indication: DEPRESSION
     Dates: start: 19980819
  47. GLUCOPHAGE [Concomitant]
     Dates: start: 20021113
  48. VALIUM [Concomitant]
     Indication: SCHIZOPHRENIA
     Dosage: 20 MG TID, 60 MG QID
     Dates: start: 20020829
  49. ACTOS [Concomitant]
     Indication: DIABETIC HYPEROSMOLAR COMA
     Dosage: 15 MG QD, 30 MG QD
     Route: 048
     Dates: start: 20030522
  50. SEROQUEL [Suspect]
     Route: 048
     Dates: start: 20020101, end: 20060413
  51. SEROQUEL [Suspect]
     Route: 048
     Dates: start: 20020411, end: 20060524
  52. SEROQUEL [Suspect]
     Route: 048
     Dates: start: 20061114
  53. ACIPHEX [Concomitant]
     Dates: start: 20020411
  54. VALIUM [Concomitant]
     Indication: BIPOLAR DISORDER
     Dosage: 20 MG TID, 60 MG QID
     Dates: start: 20020829
  55. REMERON [Concomitant]
     Indication: DEPRESSION
     Dates: start: 20020401
  56. SEROQUEL [Suspect]
     Indication: BIPOLAR DISORDER
     Dosage: 1200 MG
     Route: 048
     Dates: start: 20020101, end: 20060101
  57. SEROQUEL [Suspect]
     Route: 048
     Dates: start: 20020411, end: 20060524
  58. SEROQUEL [Suspect]
     Route: 048
     Dates: start: 20020411, end: 20060524
  59. SEROQUEL [Suspect]
     Route: 048
     Dates: start: 20020401, end: 20060801
  60. FLEXERIL [Concomitant]
     Indication: MUSCLE SPASMS
     Dosage: 10 MG PRN, 10 MG TID
     Route: 048
     Dates: start: 19981202
  61. XANAX [Concomitant]
     Dosage: 1 MG QD, 0.5 MG TID
     Dates: start: 19981202
  62. NEURONTIN [Concomitant]
     Indication: DIABETIC NEUROPATHY
     Route: 048
     Dates: start: 20020411
  63. ALDACTONE [Concomitant]
     Indication: ASCITES
     Dates: start: 20020416
  64. NIASPAN [Concomitant]
     Dates: start: 20030901

REACTIONS (11)
  - PANCREATITIS ACUTE [None]
  - DIABETIC RETINOPATHY [None]
  - VISION BLURRED [None]
  - TYPE 1 DIABETES MELLITUS [None]
  - TYPE 2 DIABETES MELLITUS [None]
  - POLYNEUROPATHY [None]
  - DIABETIC NEUROPATHY [None]
  - DIABETES MELLITUS INADEQUATE CONTROL [None]
  - PANCREATITIS [None]
  - DIABETIC HYPEROSMOLAR COMA [None]
  - DIABETIC KETOACIDOSIS [None]
